FAERS Safety Report 19707250 (Version 1)
Quarter: 2021Q3

REPORT INFORMATION
  Report Type: Spontaneous
  Country: US (occurrence: US)
  Receive Date: 20210719
  Receipt Date: 20210719
  Transmission Date: 20211014
  Serious: Yes (Other)
  Sender: FDA-Public Use
  Company Number: None

PATIENT
  Age: 34 Year
  Sex: Female

DRUGS (1)
  1. DALFAMPRIDINE. [Suspect]
     Active Substance: DALFAMPRIDINE

REACTIONS (4)
  - Chest pain [None]
  - Dyspnoea [None]
  - Therapy cessation [None]
  - Insurance issue [None]
